FAERS Safety Report 6470229-X (Version None)
Quarter: 2009Q4

REPORT INFORMATION
  Report Type: 
  Country: None (occurrence: None)
  Receive Date: 20091203
  Receipt Date: 20071128
  Transmission Date: 20100525
  Serious: Yes (Hospitalization)
  Sender: FDA-Public Use
  Company Number: IN-ELI_LILLY_AND_COMPANY-IN200711006570

PATIENT
  Age: 59 Year
  Sex: Male
  Weight: 86 kg

DRUGS (4)
  1. EXENATIDE [Suspect]
     Indication: TYPE 2 DIABETES MELLITUS
     Dosage: 5 UG, 2/D
     Route: 058
     Dates: start: 20071119
  2. MIXTARD 30/70 ^NOVO NORDISK^ [Concomitant]
     Dosage: 8 UNITS IN MORNING
     Route: 058
  3. MIXTARD 30/70 ^NOVO NORDISK^ [Concomitant]
     Dosage: 8 U, EACH EVENING
     Route: 058
  4. PIOGLITAZONE [Concomitant]
     Indication: TYPE 2 DIABETES MELLITUS
     Dosage: UNK, UNKNOWN
     Route: 065
     Dates: start: 20071119

REACTIONS (1)
  - PANCREATITIS ACUTE [None]
